FAERS Safety Report 9491015 (Version 2)
Quarter: 2013Q3

REPORT INFORMATION
  Report Type: Spontaneous
  Country: US (occurrence: None)
  Receive Date: 20130826
  Receipt Date: 20130904
  Transmission Date: 20140515
  Serious: Yes (Other)
  Sender: FDA-Public Use
  Company Number: USA/USA/13/0034192

PATIENT
  Age: 6 Year
  Sex: Female
  Weight: 25.76 kg

DRUGS (4)
  1. DIVALPROEX SODIUM [Suspect]
     Indication: CONVULSION
     Route: 048
     Dates: start: 2012
  2. CYTRA-K (MIST.PT.CIT) [Concomitant]
  3. ONFU (CLOABZAM) [Concomitant]
  4. L-CARNITINE (LEVOCARNITINE) [Concomitant]

REACTIONS (7)
  - Wrong technique in drug usage process [None]
  - Convulsion [None]
  - Muscle twitching [None]
  - Drooling [None]
  - Dyskinesia [None]
  - No therapeutic response [None]
  - Product quality issue [None]
